FAERS Safety Report 13323659 (Version 1)
Quarter: 2017Q1

REPORT INFORMATION
  Report Type: Spontaneous
  Country: US (occurrence: US)
  Receive Date: 20170310
  Receipt Date: 20170310
  Transmission Date: 20170428
  Serious: No
  Sender: FDA-Public Use
  Company Number: US-PFIZER INC-2017098719

PATIENT
  Age: 49 Year
  Sex: Female

DRUGS (15)
  1. CEFTRIAXONE SODIUM. [Suspect]
     Active Substance: CEFTRIAXONE SODIUM
     Dosage: UNK
  2. RAMIPRIL. [Suspect]
     Active Substance: RAMIPRIL
     Dosage: UNK
  3. POVIDONE-IODINE. [Suspect]
     Active Substance: POVIDONE-IODINE
     Dosage: UNK
  4. BENADRYL [Suspect]
     Active Substance: DIPHENHYDRAMINE HYDROCHLORIDE
     Dosage: UNK
  5. SULFAMETHIZOLE [Suspect]
     Active Substance: SULFAMETHIZOLE
     Dosage: UNK
  6. HYDROCODONE [Suspect]
     Active Substance: HYDROCODONE
     Dosage: UNK
  7. POLYMYXIN B SULFATE. [Suspect]
     Active Substance: POLYMYXIN B SULFATE
     Dosage: UNK
  8. BACITRACIN ZINC. [Suspect]
     Active Substance: BACITRACIN ZINC
     Dosage: UNK
  9. IODINE. [Suspect]
     Active Substance: IODINE
     Dosage: UNK
  10. OFLOXACIN. [Suspect]
     Active Substance: OFLOXACIN
     Dosage: UNK
  11. BETADINE [Suspect]
     Active Substance: POVIDONE-IODINE
     Dosage: UNK
  12. PREDNISONE. [Suspect]
     Active Substance: PREDNISONE
     Dosage: UNK
  13. METROGEL [Suspect]
     Active Substance: METRONIDAZOLE
     Dosage: UNK
  14. METHYLPREDNISOLONE. [Suspect]
     Active Substance: METHYLPREDNISOLONE
     Dosage: UNK
  15. TRIMETHOPRIM. [Suspect]
     Active Substance: TRIMETHOPRIM
     Dosage: UNK

REACTIONS (1)
  - Drug hypersensitivity [Unknown]
